FAERS Safety Report 4682407-0 (Version None)
Quarter: 2005Q2

REPORT INFORMATION
  Report Type: 
  Country: None (occurrence: None)
  Receive Date: 20050606
  Receipt Date: 20050530
  Transmission Date: 20051028
  Serious: Yes (Other)
  Sender: FDA-Public Use
  Company Number: PHBS2005CA07727

PATIENT
  Sex: Female

DRUGS (1)
  1. COMBIPATCH [Suspect]
     Dosage: 50 ESTR - 140 NORE UG/DAY
     Route: 062
     Dates: start: 20050418, end: 20050421

REACTIONS (3)
  - GENERALISED ERYTHEMA [None]
  - HORMONE LEVEL ABNORMAL [None]
  - SKIN REACTION [None]
